FAERS Safety Report 9228808 (Version 2)
Quarter: 2013Q4

REPORT INFORMATION
  Report Type: Spontaneous
  Country: GB (occurrence: GB)
  Receive Date: 20130412
  Receipt Date: 20131025
  Transmission Date: 20140711
  Serious: Yes (Death, Life-Threatening, Hospitalization)
  Sender: FDA-Public Use
  Company Number: GB-WATSON-2013-06168

PATIENT
  Age: 75 Year
  Sex: Male
  Weight: 65 kg

DRUGS (9)
  1. LAMOTRIGINE (UNKNOWN) [Suspect]
     Indication: CONVULSION
     Dosage: 75 MG, DAILY. 50MG MORNING, 25MG EVENING
     Route: 048
     Dates: start: 20130128, end: 20130311
  2. DEPIXOL                            /00109702/ [Concomitant]
     Indication: PRODUCT USED FOR UNKNOWN INDICATION
     Dosage: UNK
     Route: 065
  3. FERROUS GLUCONATE [Concomitant]
     Indication: PRODUCT USED FOR UNKNOWN INDICATION
     Dosage: UNK
     Route: 065
  4. LEVOTHYROXINE [Concomitant]
     Indication: PRODUCT USED FOR UNKNOWN INDICATION
     Dosage: UNK
     Route: 065
  5. BISOPROLOL [Concomitant]
     Indication: PRODUCT USED FOR UNKNOWN INDICATION
     Dosage: UNK
     Route: 065
  6. CLOPIDOGREL [Concomitant]
     Indication: PRODUCT USED FOR UNKNOWN INDICATION
     Dosage: UNK
     Route: 065
  7. RAMIPRIL [Concomitant]
     Indication: PRODUCT USED FOR UNKNOWN INDICATION
     Dosage: UNK
     Route: 065
  8. SIMVASTATIN [Concomitant]
     Indication: PRODUCT USED FOR UNKNOWN INDICATION
     Dosage: UNK
     Route: 065
  9. DIPROBASE                          /01210201/ [Concomitant]
     Indication: PRODUCT USED FOR UNKNOWN INDICATION
     Dosage: UNK
     Route: 065

REACTIONS (7)
  - Left ventricular dysfunction [Fatal]
  - Condition aggravated [Not Recovered/Not Resolved]
  - Skin exfoliation [Not Recovered/Not Resolved]
  - Hypothermia [Not Recovered/Not Resolved]
  - Renal impairment [Not Recovered/Not Resolved]
  - Electrolyte imbalance [Not Recovered/Not Resolved]
  - Pulmonary oedema [Not Recovered/Not Resolved]
